FAERS Safety Report 9554537 (Version 2)
Quarter: 2013Q3

REPORT INFORMATION
  Report Type: Spontaneous
  Country: GB (occurrence: GB)
  Receive Date: 20130925
  Receipt Date: 20130925
  Transmission Date: 20140515
  Serious: Yes (Death, Hospitalization, Other)
  Sender: FDA-Public Use
  Company Number: GB-BAXTER-2013BAX034784

PATIENT
  Age: 85 Year
  Sex: Male
  Weight: 72.5 kg

DRUGS (2)
  1. DIANEAL PD4 GLUCOSE 1.36% W/V / 13.6 MG/ML [Suspect]
     Indication: RENAL FAILURE CHRONIC
     Dosage: 2 BAGS
     Route: 033
     Dates: start: 201111
  2. EXTRANEAL (ICODEXTRIN 7.5%) SOLUTION FOR PERITONEAL DIALYSIS [Suspect]
     Indication: RENAL FAILURE CHRONIC
     Dosage: 1 BAG
     Dates: start: 201111

REACTIONS (3)
  - Cardiac arrest [Fatal]
  - Peritonitis bacterial [Unknown]
  - Malaise [Unknown]
